FAERS Safety Report 12439778 (Version 6)
Quarter: 2017Q1

REPORT INFORMATION
  Report Type: Spontaneous
  Country: CH (occurrence: CH)
  Receive Date: 20160606
  Receipt Date: 20170130
  Transmission Date: 20170428
  Serious: Yes (Life-Threatening, Hospitalization)
  Sender: FDA-Public Use
  Company Number: CH-SA-2016SA106807

PATIENT
  Age: 77 Year
  Sex: Female
  Weight: 53 kg

DRUGS (9)
  1. RAMIPRIL. [Concomitant]
     Active Substance: RAMIPRIL
     Route: 065
  2. AMIODARONE [Interacting]
     Active Substance: AMIODARONE
     Indication: PALPITATIONS
     Route: 065
  3. PACLITAXEL. [Interacting]
     Active Substance: PACLITAXEL
     Indication: INVASIVE DUCTAL BREAST CARCINOMA
     Dosage: EVERY 4 CYCLE
     Route: 065
  4. ASPIRIN. [Concomitant]
     Active Substance: ASPIRIN
     Route: 065
  5. ATORVASTATIN [Concomitant]
     Active Substance: ATORVASTATIN
     Route: 065
  6. AMIODARONE [Interacting]
     Active Substance: AMIODARONE
     Indication: INVASIVE DUCTAL BREAST CARCINOMA
     Route: 065
  7. TRASTUZUMAB [Concomitant]
     Active Substance: TRASTUZUMAB
     Indication: INVASIVE DUCTAL BREAST CARCINOMA
     Route: 042
  8. TORASEMIDE [Concomitant]
     Active Substance: TORSEMIDE
     Route: 065
  9. DOCETAXEL. [Suspect]
     Active Substance: DOCETAXEL
     Indication: INVASIVE DUCTAL BREAST CARCINOMA
     Dosage: DOSE: 100 MG OR 75 MG/M2
     Route: 065

REACTIONS (16)
  - Vomiting [Recovered/Resolved]
  - Skin toxicity [Recovered/Resolved]
  - Dysphagia [Recovered/Resolved]
  - Abdominal discomfort [Recovered/Resolved]
  - Odynophagia [Recovered/Resolved]
  - Dehydration [Recovered/Resolved]
  - Skin exfoliation [Recovered/Resolved]
  - Rash [Recovered/Resolved]
  - Diarrhoea [Recovered/Resolved]
  - Mucosal toxicity [Unknown]
  - Blister [Recovered/Resolved]
  - Mucosal inflammation [Recovered/Resolved]
  - Skin lesion [Recovered/Resolved]
  - Drug interaction [Recovered/Resolved]
  - Drug clearance decreased [Recovered/Resolved]
  - White blood cell count increased [Recovered/Resolved]
